FAERS Safety Report 4629352-4 (Version None)
Quarter: 2005Q2

REPORT INFORMATION
  Report Type: 
  Country: None (occurrence: None)
  Receive Date: 20050404
  Receipt Date: 20050322
  Transmission Date: 20051028
  Serious: Yes (Other)
  Sender: FDA-Public Use
  Company Number: WAES 0503ESP00064

PATIENT
  Age: 75 Year
  Sex: Female

DRUGS (6)
  1. COZAAR [Suspect]
     Indication: CARDIAC FAILURE
     Dosage: PO
     Route: 048
     Dates: start: 20050201, end: 20050322
  2. AMILORIDE HCL AND HYDROCHLOROTHIAZIDE [Concomitant]
  3. SEGURIL [Concomitant]
  4. SINTROM [Concomitant]
  5. CARVEDILOL [Concomitant]
  6. NITROGLYCERIN [Concomitant]

REACTIONS (2)
  - CUTANEOUS VASCULITIS [None]
  - HYPERSENSITIVITY [None]
